FAERS Safety Report 5933035-8 (Version None)
Quarter: 2008Q4

REPORT INFORMATION
  Report Type: 
  Country: None (occurrence: None)
  Receive Date: 20081023
  Receipt Date: 20060808
  Transmission Date: 20090506
  Serious: Yes (Hospitalization, Other)
  Sender: FDA-Public Use
  Company Number: 2006AL002503

PATIENT
  Age: 65 Year
  Sex: Female

DRUGS (5)
  1. DICLOFENAC SODIUM [Suspect]
     Indication: RHEUMATOID ARTHRITIS
     Dosage: 50 MG; QD; PO
     Route: 048
  2. HYDROCORTISONE [Concomitant]
  3. RANITIDINE [Concomitant]
  4. METHOTREXATE [Concomitant]
  5. FOLIC ACID [Concomitant]

REACTIONS (5)
  - ABDOMINAL SEPSIS [None]
  - ACUTE ABDOMEN [None]
  - ARTHRITIS INFECTIVE [None]
  - DIARRHOEA [None]
  - VOMITING [None]
